FAERS Safety Report 10232752 (Version 2)
Quarter: 2014Q3

REPORT INFORMATION
  Report Type: Spontaneous
  Country: JP (occurrence: JP)
  Receive Date: 20140612
  Receipt Date: 20140821
  Transmission Date: 20150326
  Serious: Yes (Other)
  Sender: FDA-Public Use
  Company Number: JP-PFIZER INC-2014161026

PATIENT
  Age: 69 Year
  Sex: Male

DRUGS (7)
  1. KENACORT [Suspect]
     Active Substance: TRIAMCINOLONE
     Dosage: 20 MG, 1X/DAY
     Route: 008
     Dates: start: 20140610, end: 20140610
  2. LOXONIN [Concomitant]
     Active Substance: LOXOPROFEN SODIUM
     Indication: ANALGESIC THERAPY
     Dosage: UNK
     Dates: start: 20140507
  3. KENACORT [Suspect]
     Active Substance: TRIAMCINOLONE
     Dosage: 20 MG, WEEKLY
     Route: 008
     Dates: start: 20140513, end: 20140527
  4. CELECOX [Suspect]
     Active Substance: CELECOXIB
     Indication: ANALGESIC THERAPY
     Dosage: 200 MG, 1X/DAY
     Route: 048
     Dates: start: 20140507
  5. INSULIN [Concomitant]
     Active Substance: INSULIN NOS
     Dosage: UNK
     Route: 058
  6. LYRICA [Suspect]
     Active Substance: PREGABALIN
     Dosage: 50 MG, 1X/DAY
     Route: 048
     Dates: start: 20140513
  7. KENACORT [Suspect]
     Active Substance: TRIAMCINOLONE
     Indication: EPIDURAL ANAESTHESIA
     Dosage: 20 MG, 1X/DAY
     Route: 008
     Dates: start: 20140507, end: 20140507

REACTIONS (1)
  - Blood glucose increased [Unknown]

NARRATIVE: CASE EVENT DATE: 2014
